FAERS Safety Report 16208242 (Version 3)
Quarter: 2019Q2

REPORT INFORMATION
  Report Type: Spontaneous
  Country: US (occurrence: US)
  Receive Date: 20190417
  Receipt Date: 20190522
  Transmission Date: 20190711
  Serious: Yes (Hospitalization)
  Sender: FDA-Public Use
  Company Number: US-SAOL THERAPEUTICS-2019SAO00133

PATIENT
  Age: 70 Year
  Sex: Male

DRUGS (2)
  1. LIORESAL [Suspect]
     Active Substance: BACLOFEN
     Indication: MUSCLE SPASTICITY
     Dosage: ^AROUND^ 600 ?G/DAY
     Route: 037
  2. LIORESAL [Suspect]
     Active Substance: BACLOFEN
     Indication: SPINAL CORD INJURY

REACTIONS (4)
  - Malaise [Not Recovered/Not Resolved]
  - Drug withdrawal syndrome [Unknown]
  - Blood creatine phosphokinase increased [Unknown]
  - Implant site infection [Unknown]

NARRATIVE: CASE EVENT DATE: 20190408
